FAERS Safety Report 17782402 (Version 1)
Quarter: 2020Q3

REPORT INFORMATION
  Report Type: Report from Study
  Country: ES (occurrence: ES)
  Receive Date: 20200514
  Receipt Date: 20200514
  Transmission Date: 20201105
  Serious: Yes (Hospitalization, Other)
  Sender: FDA-Public Use
  Company Number: ES-ACCORD-181511

PATIENT
  Age: 68 Year
  Sex: Female
  Weight: 80 kg

DRUGS (9)
  1. ATORVASTATIN [Concomitant]
     Active Substance: ATORVASTATIN
  2. RITUXIMAB. [Suspect]
     Active Substance: RITUXIMAB
     Indication: DIFFUSE LARGE B-CELL LYMPHOMA
     Dosage: SECOND CYCLE ADMINISTERED ON 27/MAR/2019?THIRD CYCLE ADMINISTERED ON 24/APR/2019
     Route: 041
     Dates: start: 20190211, end: 20190725
  3. PENTAMIDINE [Concomitant]
     Active Substance: PENTAMIDINE
     Dosage: INHALATION
     Route: 065
  4. OMEPRAZOLE. [Concomitant]
     Active Substance: OMEPRAZOLE
     Route: 048
  5. PARACETAMOL [Concomitant]
     Active Substance: ACETAMINOPHEN
     Indication: PREMEDICATION
     Route: 042
     Dates: start: 20190211, end: 20190211
  6. AMLODIPINE [Concomitant]
     Active Substance: AMLODIPINE BESYLATE
     Route: 048
  7. METHYLPREDNISOLONE. [Concomitant]
     Active Substance: METHYLPREDNISOLONE
     Indication: PREMEDICATION
     Route: 042
     Dates: start: 20190211, end: 20190211
  8. BENDAMUSTINE/BENDAMUSTINE HYDROCHLORIDE [Suspect]
     Active Substance: BENDAMUSTINE HYDROCHLORIDE
     Indication: DIFFUSE LARGE B-CELL LYMPHOMA
     Dosage: THIRD CYCLE ADMINISTERED ON 24/APR/2019 WITH BENDAMUSTIN AT 70% DOSE
     Route: 042
     Dates: start: 20190211, end: 20190627
  9. POLATUZUMAB VEDOTIN. [Suspect]
     Active Substance: POLATUZUMAB VEDOTIN
     Indication: DIFFUSE LARGE B-CELL LYMPHOMA
     Dosage: SECOND CYCLE ADMINISTERED ON 27/MAR/2019?THIRD CYCLE ADMINISTERED ON 24/APR/2019
     Route: 042
     Dates: start: 20190211, end: 20190725

REACTIONS (4)
  - Agranulocytosis [Recovered/Resolved]
  - Lung consolidation [Unknown]
  - Infusion site extravasation [Recovered/Resolved]
  - Pancytopenia [Recovered/Resolved]

NARRATIVE: CASE EVENT DATE: 20190522
